FAERS Safety Report 4524460-0 (Version None)
Quarter: 2004Q4

REPORT INFORMATION
  Report Type: 
  Country: None (occurrence: None)
  Receive Date: 20041116
  Receipt Date: 20041011
  Transmission Date: 20050328
  Serious: No
  Sender: FDA-Public Use
  Company Number: PHEH2004US10961

PATIENT
  Age: 73 Year
  Sex: Male

DRUGS (4)
  1. GLEEVEC [Suspect]
     Indication: CHRONIC MYELOID LEUKAEMIA
     Dosage: 600 MG, QD, ORAL
     Route: 048
     Dates: start: 20040902
  2. DIOVAN [Concomitant]
  3. PLENDIL [Concomitant]
  4. PROSCAR [Concomitant]

REACTIONS (1)
  - BLOOD GLUCOSE INCREASED [None]
